FAERS Safety Report 18744504 (Version 2)
Quarter: 2022Q2

REPORT INFORMATION
  Report Type: Spontaneous
  Country: US (occurrence: US)
  Receive Date: 20210115
  Receipt Date: 20220520
  Transmission Date: 20220721
  Serious: No
  Sender: FDA-Public Use
  Company Number: US-SANOFI-00427969

PATIENT
  Sex: Female

DRUGS (1)
  1. ALLEGRA D-12 HOUR [Suspect]
     Active Substance: FEXOFENADINE HYDROCHLORIDE\PSEUDOEPHEDRINE HYDROCHLORIDE
     Indication: Paranasal sinus discomfort
     Dosage: UNK UNK, BID
     Route: 065

REACTIONS (1)
  - Drug ineffective [Unknown]
